FAERS Safety Report 13797411 (Version 1)
Quarter: 2017Q3

REPORT INFORMATION
  Report Type: Spontaneous
  Country: CA (occurrence: CA)
  Receive Date: 20170727
  Receipt Date: 20170727
  Transmission Date: 20171127
  Serious: Yes (Other)
  Sender: FDA-Public Use
  Company Number: CA-ROCHE-1965391

PATIENT
  Sex: Female

DRUGS (2)
  1. PERJETA [Suspect]
     Active Substance: PERTUZUMAB
     Indication: PRODUCT USED FOR UNKNOWN INDICATION
     Route: 065
     Dates: start: 2013
  2. HERCEPTIN [Suspect]
     Active Substance: TRASTUZUMAB
     Indication: PRODUCT USED FOR UNKNOWN INDICATION
     Dosage: FOR 6 YEARS
     Route: 065

REACTIONS (19)
  - Dizziness [Unknown]
  - Confusional state [Unknown]
  - Heart rate increased [Unknown]
  - Neck pain [Unknown]
  - Fall [Unknown]
  - Hypotension [Unknown]
  - Nerve injury [Unknown]
  - Fatigue [Unknown]
  - Dyspnoea [Unknown]
  - Renal failure [Unknown]
  - Concussion [Unknown]
  - Feeling abnormal [Unknown]
  - Tremor [Unknown]
  - Hypertension [Unknown]
  - Hot flush [Unknown]
  - Night sweats [Unknown]
  - Autonomic neuropathy [Unknown]
  - Impaired gastric emptying [Unknown]
  - Headache [Unknown]
